FAERS Safety Report 5841895-4 (Version None)
Quarter: 2008Q3

REPORT INFORMATION
  Report Type: 
  Country: None (occurrence: None)
  Receive Date: 20080811
  Receipt Date: 20080811
  Transmission Date: 20090109
  Serious: Yes (Disabling)
  Sender: FDA-Public Use
  Company Number: None

PATIENT
  Age: 32 Year
  Sex: Female

DRUGS (1)
  1. ETOMIDATE [Suspect]
     Indication: SEDATION
     Dosage: 10 MG  X1  IV BOLUS
     Route: 040
     Dates: start: 20080808, end: 20080808

REACTIONS (1)
  - TACHYCARDIA [None]
